FAERS Safety Report 8731736 (Version 2)
Quarter: 2014Q3

REPORT INFORMATION
  Report Type: Spontaneous
  Country: US (occurrence: US)
  Receive Date: 20120820
  Receipt Date: 20140912
  Transmission Date: 20150326
  Serious: Yes (Life-Threatening, Hospitalization, Disabling, Other)
  Sender: FDA-Public Use
  Company Number: US-BAYER-2012-082796

PATIENT
  Age: 30 Year
  Sex: Female
  Weight: 49.89 kg

DRUGS (13)
  1. PROZAC [Concomitant]
     Active Substance: FLUOXETINE HYDROCHLORIDE
     Indication: INSOMNIA
  2. GIANVI [Suspect]
     Active Substance: DROSPIRENONE\ETHINYL ESTRADIOL
     Indication: PREMENSTRUAL SYNDROME
  3. ALPRAZOLAM. [Concomitant]
     Active Substance: ALPRAZOLAM
     Dosage: 0.5 MG, UNK
     Dates: start: 20111214
  4. CITALOPRAM [Concomitant]
     Active Substance: CITALOPRAM HYDROBROMIDE
     Dosage: 40 MG, UNK
     Dates: start: 20111212
  5. FLUOXETINE [Concomitant]
     Active Substance: FLUOXETINE\FLUOXETINE HYDROCHLORIDE
     Dosage: 20 MG, QD
     Route: 048
     Dates: start: 20111212
  6. YAZ [Suspect]
     Active Substance: DROSPIRENONE\ETHINYL ESTRADIOL
     Indication: PREMENSTRUAL SYNDROME
  7. ATIVAN [Concomitant]
     Active Substance: LORAZEPAM
     Dosage: UNK
     Dates: start: 20111212
  8. AZITHROMYCIN [Concomitant]
     Active Substance: AZITHROMYCIN ANHYDROUS
     Dosage: 250 MG, UNK
     Dates: start: 20120202
  9. GABAPENTIN. [Concomitant]
     Active Substance: GABAPENTIN
  10. ZOCOR [Concomitant]
     Active Substance: SIMVASTATIN
  11. MAXALT [Concomitant]
     Active Substance: RIZATRIPTAN BENZOATE
     Indication: MIGRAINE
  12. GIANVI [Suspect]
     Active Substance: DROSPIRENONE\ETHINYL ESTRADIOL
     Indication: PREMENSTRUAL DYSPHORIC DISORDER
  13. YAZ [Suspect]
     Active Substance: DROSPIRENONE\ETHINYL ESTRADIOL
     Indication: PREMENSTRUAL DYSPHORIC DISORDER
     Dosage: UNK
     Dates: start: 2009, end: 20120207

REACTIONS (28)
  - Horner^s syndrome [None]
  - Memory impairment [None]
  - Paraesthesia [None]
  - Brain stem infarction [None]
  - Nystagmus [None]
  - Injury [None]
  - Fatigue [None]
  - Hypoaesthesia [None]
  - Vertigo [None]
  - Emotional distress [None]
  - Vocal cord paralysis [None]
  - Cerebrovascular accident [None]
  - Asthenia [None]
  - Dizziness [None]
  - Headache [None]
  - Lateral medullary syndrome [None]
  - Thrombosis [None]
  - Anxiety [None]
  - Ataxia [None]
  - Dysphagia [None]
  - Cerebrovascular accident [None]
  - Pain [None]
  - Anhedonia [None]
  - Pain [None]
  - Temperature regulation disorder [None]
  - Quality of life decreased [None]
  - General physical health deterioration [None]
  - Physical disability [None]

NARRATIVE: CASE EVENT DATE: 20120207
